FAERS Safety Report 8959022 (Version 1)
Quarter: 2012Q4

REPORT INFORMATION
  Report Type: 
  Country: GR (occurrence: GR)
  Receive Date: 20121212
  Receipt Date: 20121212
  Transmission Date: 20130627
  Serious: Yes (Other)
  Sender: FDA-Public Use
  Company Number: GR-009507513-1212GRC003201

PATIENT
  Age: 72 Year
  Sex: Male

DRUGS (6)
  1. JANUMET [Suspect]
     Indication: TYPE 2 DIABETES MELLITUS
     Dosage: 50 mg/850 mg, bid
     Route: 048
     Dates: start: 20120502, end: 20120510
  2. JANUMET [Suspect]
     Dosage: 50 mg/850 mg, bid
     Route: 048
     Dates: start: 20120514, end: 20120521
  3. ZOFENOPRIL CALCIUM [Concomitant]
     Indication: HYPERTENSION
     Dosage: 30mg/12.5mg, qd
     Route: 048
  4. CO-DIOVAN [Concomitant]
     Indication: HYPERTENSION
     Dosage: 320mg/12.5mg, qd
     Route: 048
  5. MONOSORDIL [Concomitant]
     Indication: HYPERTENSION
     Dosage: 20 mg, qd
     Route: 048
  6. NEOCARDON [Concomitant]
     Indication: HYPERTENSION
     Dosage: 50 mg, bid
     Route: 048

REACTIONS (3)
  - Eczema nummular [Not Recovered/Not Resolved]
  - Urticaria [Recovering/Resolving]
  - Urticaria [Not Recovered/Not Resolved]
